FAERS Safety Report 24117662 (Version 2)
Quarter: 2024Q3

REPORT INFORMATION
  Report Type: Spontaneous
  Country: PT (occurrence: PT)
  Receive Date: 20240722
  Receipt Date: 20240926
  Transmission Date: 20241017
  Serious: Yes (Other)
  Sender: CELLTRION
  Company Number: PT-CELLTRION INC.-2024PT017300

PATIENT

DRUGS (1)
  1. YUFLYMA [Suspect]
     Active Substance: ADALIMUMAB-AATY
     Indication: Product used for unknown indication
     Dosage: HIDRADENITE SUPURATIVA 80 MILLIGRAM EVERY 15 DAY
     Route: 058
     Dates: start: 20231227, end: 20240220

REACTIONS (3)
  - Inguinal mass [Recovered/Resolved]
  - Testicular mass [Recovered/Resolved]
  - Gait disturbance [Recovered/Resolved]

NARRATIVE: CASE EVENT DATE: 20240220
